FAERS Safety Report 13660825 (Version 3)
Quarter: 2023Q2

REPORT INFORMATION
  Report Type: Spontaneous
  Country: US (occurrence: US)
  Receive Date: 20170616
  Receipt Date: 20230428
  Transmission Date: 20230722
  Serious: Yes (Life-Threatening, Hospitalization, Other)
  Sender: FDA-Public Use
  Company Number: US-009507513-1706USA002906

PATIENT
  Age: 74 Year
  Sex: Male
  Weight: 48.073 kg

DRUGS (8)
  1. BAYER ASPIRIN [Suspect]
     Active Substance: ASPIRIN
     Dosage: DOSE, FREQUENCY AND INDICATION WERE NOT REPORTED
     Route: 048
  2. JANUVIA [Concomitant]
     Active Substance: SITAGLIPTIN PHOSPHATE
     Indication: Blood glucose abnormal
     Dosage: 100 MG, QD
     Route: 048
     Dates: start: 2006, end: 201703
  3. PRECOSE [Concomitant]
     Active Substance: ACARBOSE
  4. PRECOSE [Concomitant]
     Active Substance: ACARBOSE
  5. GLIPIZIDE [Concomitant]
     Active Substance: GLIPIZIDE
  6. GLIPIZIDE [Concomitant]
     Active Substance: GLIPIZIDE
  7. METFORMIN [Concomitant]
     Active Substance: METFORMIN HYDROCHLORIDE
  8. METFORMIN [Concomitant]
     Active Substance: METFORMIN HYDROCHLORIDE

REACTIONS (2)
  - Blood loss anaemia [Recovered/Resolved]
  - Gastrointestinal haemorrhage [Unknown]

NARRATIVE: CASE EVENT DATE: 20170101
